FAERS Safety Report 7587136 (Version 2)
Quarter: 2014Q2

REPORT INFORMATION
  Report Type: Report from Study
  Country: JP (occurrence: JP)
  Receive Date: 20100915
  Receipt Date: 20140404
  Transmission Date: 20141212
  Serious: Yes (Death)
  Sender: FDA-Public Use
  Company Number: PHHY2010JP58657

PATIENT
  Age: 83 Year
  Sex: Female
  Weight: 47 kg

DRUGS (14)
  1. ICL670A [Suspect]
     Indication: MYELODYSPLASTIC SYNDROME
     Dosage: 500 MG DAILY
     Route: 048
     Dates: start: 20081022, end: 20081218
  2. ICL670A [Suspect]
     Dosage: 1000 MG DAILY
     Route: 048
     Dates: start: 20081219, end: 20090807
  3. NEORAL [Suspect]
     Indication: MYELODYSPLASTIC SYNDROME
     Dosage: 120 MG, UNK
     Route: 048
     Dates: start: 20081022
  4. NEORAL [Suspect]
     Dosage: 100 MG, UNK
     Route: 048
     Dates: start: 20081202, end: 20090202
  5. NEORAL [Suspect]
     Dosage: 80 MG, UNK
     Route: 048
     Dates: start: 20090203
  6. DESFERAL [Concomitant]
     Indication: IRON OVERLOAD
     Dosage: 1000 MG, UNK
     Route: 030
     Dates: start: 20070213, end: 20081021
  7. ALFAROL [Concomitant]
     Indication: MYELODYSPLASTIC SYNDROME
     Route: 048
     Dates: start: 20081022
  8. GLAKAY [Concomitant]
     Indication: MYELODYSPLASTIC SYNDROME
     Dosage: 45 MG, UNK
     Route: 048
     Dates: start: 20081022
  9. PYDOXAL [Concomitant]
     Indication: MYELODYSPLASTIC SYNDROME
     Dosage: 60 MG, UNK
     Route: 048
     Dates: start: 20051022
  10. VITAMEDIN CAPSULE [Concomitant]
     Indication: MYELODYSPLASTIC SYNDROME
     Dosage: 3 DF, UNK
     Route: 048
  11. LASIX [Concomitant]
     Dosage: 1 DF, UNK
     Route: 048
  12. BLOPRESS [Concomitant]
     Dosage: 1 DF, UNK
     Route: 048
  13. URSO [Concomitant]
     Dosage: 3 DF, UNK
     Route: 048
  14. THYRADIN [Concomitant]
     Dosage: 5 DF, UNK
     Route: 048

REACTIONS (2)
  - Disease progression [Fatal]
  - Blood creatinine increased [Not Recovered/Not Resolved]
